FAERS Safety Report 8452320-1 (Version None)
Quarter: 2012Q2

REPORT INFORMATION
  Report Type: 
  Country: None (occurrence: None)
  Receive Date: 20120620
  Receipt Date: 20120418
  Transmission Date: 20120825
  Serious: No
  Sender: FDA-Public Use
  Company Number: US-VERTEX PHARMACEUTICALS INC.-AE-2012-004934

PATIENT
  Sex: Female
  Weight: 56.296 kg

DRUGS (6)
  1. M.V.I. [Concomitant]
  2. PEGASYS [Concomitant]
     Indication: HEPATITIS C
     Route: 058
     Dates: start: 20120330
  3. INCIVEK [Suspect]
     Indication: HEPATITIS C
     Route: 048
     Dates: start: 20120330
  4. RIBAVIRIN [Concomitant]
     Indication: HEPATITIS C
     Dates: start: 20120330
  5. ZANTAC [Concomitant]
  6. ESTRACE [Concomitant]

REACTIONS (9)
  - PLATELET COUNT DECREASED [None]
  - DECREASED APPETITE [None]
  - ERYTHEMA [None]
  - WHITE BLOOD CELL COUNT DECREASED [None]
  - HYPERHIDROSIS [None]
  - RASH PRURITIC [None]
  - INFLUENZA LIKE ILLNESS [None]
  - ASTHENIA [None]
  - NAUSEA [None]
